FAERS Safety Report 7639513-8 (Version None)
Quarter: 2011Q3

REPORT INFORMATION
  Report Type: 
  Country: None (occurrence: None)
  Receive Date: 20110727
  Receipt Date: 20110721
  Transmission Date: 20111222
  Serious: Yes (Hospitalization)
  Sender: FDA-Public Use
  Company Number: JP-GLAXOSMITHKLINE-B0625916A

PATIENT
  Sex: Male

DRUGS (4)
  1. CANDESARTAN CILEXETIL [Concomitant]
     Indication: HYPERTENSION
     Dosage: 8MG PER DAY
     Route: 048
  2. CALCIUM CARBONATE [Concomitant]
     Indication: BLOOD PHOSPHORUS INCREASED
     Dosage: 1.5MG PER DAY
     Route: 048
  3. VALTREX [Suspect]
     Indication: HERPES ZOSTER
     Dosage: 500MG PER DAY
     Route: 048
     Dates: start: 20100105, end: 20100109
  4. LEXIN [Concomitant]
     Indication: TRIGEMINAL NEURALGIA
     Dosage: 200MG PER DAY
     Route: 048

REACTIONS (4)
  - TREMOR [None]
  - OVERDOSE [None]
  - RESTLESSNESS [None]
  - DISORIENTATION [None]
